FAERS Safety Report 13308805 (Version 1)
Quarter: 2017Q1

REPORT INFORMATION
  Report Type: Spontaneous
  Country: US (occurrence: US)
  Receive Date: 20170308
  Receipt Date: 20170308
  Transmission Date: 20170428
  Serious: Yes (Other)
  Sender: FDA-Public Use
  Company Number: None

PATIENT
  Age: 70 Year
  Sex: Female
  Weight: 107.1 kg

DRUGS (18)
  1. DATROL LA [Concomitant]
  2. PRILOSEC [Concomitant]
     Active Substance: OMEPRAZOLE MAGNESIUM
  3. FISH OIL [Concomitant]
     Active Substance: FISH OIL
  4. LOSARTIN [Concomitant]
     Active Substance: LOSARTAN
  5. VITAMIN D [Concomitant]
     Active Substance: CHOLECALCIFEROL
  6. XYZAL [Concomitant]
     Active Substance: LEVOCETIRIZINE DIHYDROCHLORIDE
  7. GLUCOSAMINE/CHONDROITIN [Concomitant]
  8. EFFEXOR XR [Concomitant]
     Active Substance: VENLAFAXINE HYDROCHLORIDE
  9. BYSTOLIC [Concomitant]
     Active Substance: NEBIVOLOL HYDROCHLORIDE
  10. ASPIRIN. [Concomitant]
     Active Substance: ASPIRIN
  11. TURMERIC (CURCUMIN) [Concomitant]
  12. IBRANCE [Suspect]
     Active Substance: PALBOCICLIB
     Indication: BREAST CANCER STAGE IV
     Dosage: ?          QUANTITY:1 CAPSULE(S);?
     Route: 048
  13. FASLODEX [Concomitant]
     Active Substance: FULVESTRANT
  14. CELEBREX [Concomitant]
     Active Substance: CELECOXIB
  15. VITAMIN C [Concomitant]
     Active Substance: ASCORBIC ACID
  16. SYNTHROID [Concomitant]
     Active Substance: LEVOTHYROXINE SODIUM
  17. ALLEGRA [Concomitant]
     Active Substance: FEXOFENADINE HYDROCHLORIDE
  18. CALCIUM [Concomitant]
     Active Substance: CALCIUM

REACTIONS (2)
  - Dyspnoea [None]
  - Interstitial lung disease [None]

NARRATIVE: CASE EVENT DATE: 20161004
